FAERS Safety Report 7400961-2 (Version None)
Quarter: 2011Q2

REPORT INFORMATION
  Report Type: 
  Country: None (occurrence: None)
  Receive Date: 20110407
  Receipt Date: 20110404
  Transmission Date: 20111010
  Serious: Yes (Death)
  Sender: FDA-Public Use
  Company Number: JP-PFIZER INC-2011074382

PATIENT
  Sex: Female
  Weight: 47 kg

DRUGS (10)
  1. DECADRON [Concomitant]
     Indication: RENAL CELL CARCINOMA
     Dosage: 2 MG, 1X/DAY
     Route: 042
     Dates: start: 20110109
  2. DEXAMETHASONE [Concomitant]
     Indication: STOMATITIS
     Dosage: UNK
     Route: 062
     Dates: start: 20110124
  3. PARIET [Concomitant]
     Indication: PROPHYLAXIS
     Dosage: 10 MG, 1X/DAY
     Route: 048
  4. LASIX [Concomitant]
     Indication: RENAL CELL CARCINOMA
     Dosage: 20 MG, 2X/DAY
     Route: 048
     Dates: start: 20110106
  5. MAGNESIUM OXIDE [Concomitant]
     Dosage: 330 MG, 3X/DAY
     Route: 048
     Dates: start: 20110124
  6. MOBIC [Concomitant]
     Indication: RENAL CELL CARCINOMA
     Dosage: 10 MG, 1X/DAY
     Route: 048
     Dates: start: 20110106
  7. TEMSIROLIMUS [Suspect]
     Indication: METASTATIC RENAL CELL CARCINOMA
     Dosage: 25 MG, WEEKLY
     Route: 042
     Dates: start: 20110105, end: 20110126
  8. HEPARIN [Concomitant]
     Indication: RENAL CELL CARCINOMA
     Dosage: 5000 DF, UNK
     Route: 042
  9. OXYCONTIN [Concomitant]
     Indication: RENAL CELL CARCINOMA
     Dosage: 10 MG, 2X/DAY
     Route: 048
     Dates: start: 20110124
  10. NOVAMIN [Concomitant]
     Dosage: 5 MG, 3X/DAY
     Route: 048
     Dates: start: 20110124

REACTIONS (1)
  - DEATH [None]
